FAERS Safety Report 17430718 (Version 1)
Quarter: 2020Q1

REPORT INFORMATION
  Report Type: Spontaneous
  Country: US (occurrence: US)
  Receive Date: 20200218
  Receipt Date: 20200218
  Transmission Date: 20200409
  Serious: No
  Sender: FDA-Public Use
  Company Number: US-BIOCODEX SA-201901526

PATIENT
  Age: 21 Year
  Sex: Female

DRUGS (1)
  1. DIACOMIT [Suspect]
     Active Substance: STIRIPENTOL
     Indication: PRODUCT USED FOR UNKNOWN INDICATION
     Dosage: 1000MG TWICE DAILY
     Route: 065
     Dates: start: 20190530

REACTIONS (2)
  - Emergency care [Unknown]
  - Vomiting [Unknown]

NARRATIVE: CASE EVENT DATE: 20191108
